FAERS Safety Report 17437620 (Version 4)
Quarter: 2020Q2

REPORT INFORMATION
  Report Type: Spontaneous
  Country: US (occurrence: US)
  Receive Date: 20200219
  Receipt Date: 20200609
  Transmission Date: 20200713
  Serious: Yes (Death)
  Sender: FDA-Public Use
  Company Number: US-ACTELION-A-NJ2020-201729

PATIENT
  Age: 68 Year
  Sex: Male

DRUGS (15)
  1. ADVAIR HFA [Concomitant]
     Active Substance: FLUTICASONE PROPIONATE\SALMETEROL XINAFOATE
     Dosage: 1 PUFF, BID
  2. LEFLUNOMIDE. [Concomitant]
     Active Substance: LEFLUNOMIDE
     Dosage: 20 MG, QD
  3. LASIX [Concomitant]
     Active Substance: FUROSEMIDE
     Dosage: 40 MG, BID
     Route: 048
     Dates: start: 20200207
  4. POTASSIUM [Concomitant]
     Active Substance: POTASSIUM
     Dosage: UNK, BID
     Route: 048
     Dates: start: 20190729
  5. LISINOPRIL HCTZ [Concomitant]
     Active Substance: HYDROCHLOROTHIAZIDE\LISINOPRIL
     Dosage: UNK
     Dates: start: 20200207
  6. ACCUNEB [Concomitant]
     Active Substance: ALBUTEROL SULFATE
     Dosage: 1.25 MG/ML
     Dates: start: 20200207
  7. BUMEX [Concomitant]
     Active Substance: BUMETANIDE
  8. LORAZEPAM. [Concomitant]
     Active Substance: LORAZEPAM
  9. IPRATROPIUM [Concomitant]
     Active Substance: IPRATROPIUM
  10. LIPITOR [Concomitant]
     Active Substance: ATORVASTATIN CALCIUM
     Dosage: 20 MG
  11. METOLAZONE. [Concomitant]
     Active Substance: METOLAZONE
  12. ATENOLOL. [Concomitant]
     Active Substance: ATENOLOL
     Dosage: 25 MG, QD
  13. PROSTATE COMPLEX [Concomitant]
     Dosage: UNK
  14. OPSUMIT [Suspect]
     Active Substance: MACITENTAN
     Indication: PULMONARY HYPERTENSION
     Dosage: 10 MG
     Route: 048
     Dates: start: 20200127, end: 202002
  15. SILDENAFIL. [Suspect]
     Active Substance: SILDENAFIL
     Indication: PULMONARY HYPERTENSION
     Dosage: 40 MG, QD
     Route: 048
     Dates: start: 20191220

REACTIONS (10)
  - Nasal congestion [Not Recovered/Not Resolved]
  - Chest discomfort [Not Recovered/Not Resolved]
  - Oxygen saturation decreased [Not Recovered/Not Resolved]
  - Nausea [Not Recovered/Not Resolved]
  - Fluid retention [Not Recovered/Not Resolved]
  - Death [Fatal]
  - Cough [Not Recovered/Not Resolved]
  - Headache [Not Recovered/Not Resolved]
  - Oedema peripheral [Not Recovered/Not Resolved]
  - Dyspnoea [Not Recovered/Not Resolved]

NARRATIVE: CASE EVENT DATE: 20200127
